FAERS Safety Report 11211405 (Version 1)
Quarter: 2015Q2

REPORT INFORMATION
  Report Type: Spontaneous
  Country: US (occurrence: None)
  Receive Date: 20150619
  Receipt Date: 20150619
  Transmission Date: 20150821
  Serious: Yes (Hospitalization)
  Sender: FDA-Public Use
  Company Number: None

PATIENT
  Age: 71 Year
  Sex: Female
  Weight: 58.1 kg

DRUGS (17)
  1. DECADRON [Concomitant]
     Active Substance: DEXAMETHASONE
  2. MAG OX [Concomitant]
     Active Substance: MAGNESIUM OXIDE
  3. ATIVAN [Concomitant]
     Active Substance: LORAZEPAM
  4. RITALIN [Concomitant]
     Active Substance: METHYLPHENIDATE HYDROCHLORIDE
  5. REQUIP [Concomitant]
     Active Substance: ROPINIROLE HYDROCHLORIDE
  6. CAMPAZINE [Concomitant]
  7. NEURONTIN [Concomitant]
     Active Substance: GABAPENTIN
  8. ZOFRAN [Concomitant]
     Active Substance: ONDANSETRON HYDROCHLORIDE
  9. DIOVAN [Concomitant]
     Active Substance: VALSARTAN
  10. CLARITIN [Concomitant]
     Active Substance: LORATADINE
  11. TAXOTERE [Suspect]
     Active Substance: DOCETAXEL
     Indication: CHEMOTHERAPY
     Dosage: RECENT
  12. CARDIZEM CD [Concomitant]
     Active Substance: DILTIAZEM HYDROCHLORIDE
  13. KDUR [Concomitant]
  14. ALENDRONATE [Concomitant]
     Active Substance: ALENDRONATE SODIUM
  15. APAP [Concomitant]
     Active Substance: ACETAMINOPHEN
  16. TUMS [Concomitant]
     Active Substance: CALCIUM CARBONATE
  17. DRISDOL [Concomitant]
     Active Substance: ERGOCALCIFEROL

REACTIONS (3)
  - Sepsis [None]
  - Pulmonary toxicity [None]
  - Pyrexia [None]

NARRATIVE: CASE EVENT DATE: 20150120
